FAERS Safety Report 23799997 (Version 1)
Quarter: 2024Q2

REPORT INFORMATION
  Report Type: Spontaneous
  Country: KW (occurrence: EG)
  Receive Date: 20240430
  Receipt Date: 20240430
  Transmission Date: 20240716
  Serious: Yes (Life-Threatening, Other)
  Sender: FDA-Public Use
  Company Number: KW-002147023-NVSC2024EG089088

PATIENT
  Age: 73 Year
  Sex: Male

DRUGS (1)
  1. ENTRESTO [Suspect]
     Active Substance: SACUBITRIL\VALSARTAN
     Indication: Myocardial ischaemia
     Dosage: UNK
     Route: 065

REACTIONS (6)
  - Arrhythmia [Not Recovered/Not Resolved]
  - Angioedema [Unknown]
  - Cardiac arrest [Recovering/Resolving]
  - Decreased appetite [Unknown]
  - Ejection fraction abnormal [Unknown]
  - Cardiac disorder [Unknown]
